FAERS Safety Report 19467152 (Version 1)
Quarter: 2021Q2

REPORT INFORMATION
  Report Type: Spontaneous
  Country: US (occurrence: US)
  Receive Date: 20210625
  Receipt Date: 20210625
  Transmission Date: 20210717
  Serious: No
  Sender: FDA-Public Use
  Company Number: None

PATIENT
  Age: 67 Year
  Sex: Male
  Weight: 101 kg

DRUGS (3)
  1. PANZYGA [Suspect]
     Active Substance: HUMAN IMMUNOGLOBULIN G
     Indication: IMMUNODEFICIENCY COMMON VARIABLE
     Dosage: ?          OTHER FREQUENCY:Q28DAY;?
     Route: 042
     Dates: start: 20210607
  2. PANZYGA [Suspect]
     Active Substance: HUMAN IMMUNOGLOBULIN G
     Indication: IMMUNODEFICIENCY COMMON VARIABLE
     Dosage: ?          OTHER FREQUENCY:Q 28 DAYS;?
     Route: 042
     Dates: start: 20210607
  3. PANZYGA [Concomitant]
     Active Substance: HUMAN IMMUNOGLOBULIN G
     Dates: start: 20210127

REACTIONS (3)
  - Pruritus [None]
  - Product quality issue [None]
  - Urticaria [None]

NARRATIVE: CASE EVENT DATE: 20210609
